FAERS Safety Report 11375187 (Version 2)
Quarter: 2015Q3

REPORT INFORMATION
  Report Type: Report from Study
  Country: US (occurrence: US)
  Receive Date: 20150813
  Receipt Date: 20150821
  Transmission Date: 20151125
  Serious: Yes (Hospitalization)
  Sender: FDA-Public Use
  Company Number: US-BIOGENIDEC-2015BI111053

PATIENT
  Age: 47 Year
  Sex: Male

DRUGS (1)
  1. AVONEX [Suspect]
     Active Substance: INTERFERON BETA-1A
     Indication: MULTIPLE SCLEROSIS
     Route: 030
     Dates: start: 20150708, end: 201508

REACTIONS (5)
  - Spondylitis [Not Recovered/Not Resolved]
  - Injection site pain [Unknown]
  - Neck pain [Not Recovered/Not Resolved]
  - Pain [Unknown]
  - Neck surgery [Recovered/Resolved]

NARRATIVE: CASE EVENT DATE: 20150810
